FAERS Safety Report 11923674 (Version 6)
Quarter: 2016Q3

REPORT INFORMATION
  Report Type: Spontaneous
  Country: PR (occurrence: PR)
  Receive Date: 20160118
  Receipt Date: 20160805
  Transmission Date: 20161109
  Serious: No
  Sender: FDA-Public Use
  Company Number: PR-PFIZER INC-2015468828

PATIENT
  Age: 67 Year
  Sex: Female
  Weight: 76.64 kg

DRUGS (4)
  1. IBRANCE [Suspect]
     Active Substance: PALBOCICLIB
     Dosage: 75 MG, 1X/DAY
     Route: 048
  2. IBRANCE [Suspect]
     Active Substance: PALBOCICLIB
     Dosage: 75 MG, 1X/DAY
     Route: 048
  3. IBRANCE [Suspect]
     Active Substance: PALBOCICLIB
     Dosage: 75 MG, (1 TABLET ONCE DAILY FOR 21 DAYS)
     Route: 048
  4. IBRANCE [Suspect]
     Active Substance: PALBOCICLIB
     Indication: BREAST CANCER FEMALE
     Dosage: 75 MG, 1X/DAY
     Route: 048
     Dates: start: 20151019

REACTIONS (6)
  - Bone pain [Unknown]
  - Dysuria [Not Recovered/Not Resolved]
  - Abdominal distension [Unknown]
  - Haemoglobin decreased [Unknown]
  - Fatigue [Unknown]
  - Abdominal pain upper [Unknown]
